FAERS Safety Report 8992665 (Version 2)
Quarter: 2013Q2

REPORT INFORMATION
  Report Type: Spontaneous
  Country: US (occurrence: US)
  Receive Date: 20130101
  Receipt Date: 20130514
  Transmission Date: 20140414
  Serious: Yes (Hospitalization, Other)
  Sender: FDA-Public Use
  Company Number: US-UCBSA-073919

PATIENT
  Age: 37 Year
  Sex: Male
  Weight: 61.68 kg

DRUGS (11)
  1. KEPPRA [Suspect]
     Indication: CONVULSION
     Dosage: UNKNOWN DOSE
     Route: 048
     Dates: start: 201209, end: 20121017
  2. KEPPRA [Suspect]
     Indication: CONVULSION
     Dosage: UNKNOWN DOSE
  3. GLASSIA [Suspect]
     Indication: PNEUMOCONIOSIS
     Route: 042
     Dates: start: 201207
  4. GLASSIA [Suspect]
     Indication: CHRONIC OBSTRUCTIVE PULMONARY DISEASE
     Route: 042
     Dates: start: 201207
  5. THEOPHYLLINE [Concomitant]
  6. FENTANYL [Concomitant]
     Dosage: PATCH
  7. CLONIPINE [Concomitant]
  8. CELEXA [Concomitant]
  9. ABILIFY [Concomitant]
  10. ADVAIR [Concomitant]
  11. SPIRIVA [Concomitant]

REACTIONS (8)
  - Convulsion [Recovered/Resolved]
  - Dyspnoea [Not Recovered/Not Resolved]
  - Cardiac arrest [Unknown]
  - Pneumothorax [Unknown]
  - Unresponsive to stimuli [Unknown]
  - Respiratory arrest [Unknown]
  - Chronic obstructive pulmonary disease [Unknown]
  - Alpha-1 anti-trypsin deficiency [Unknown]
